FAERS Safety Report 7680838-8 (Version None)
Quarter: 2011Q3

REPORT INFORMATION
  Report Type: 
  Country: None (occurrence: None)
  Receive Date: 20110812
  Receipt Date: 20110804
  Transmission Date: 20111222
  Serious: Yes (Hospitalization, Disabling, Other)
  Sender: FDA-Public Use
  Company Number: US-MERCK-1103USA02674

PATIENT
  Age: 46 Year
  Sex: Female
  Weight: 94 kg

DRUGS (8)
  1. FOSAMAX [Suspect]
     Route: 048
     Dates: start: 20070101, end: 20090101
  2. [THERAPY UNSPECIFIED] [Concomitant]
     Indication: HYPERTENSION
     Route: 048
  3. FOSAMAX [Suspect]
     Indication: OSTEOPENIA
     Route: 048
     Dates: start: 19950101, end: 20041208
  4. FOSAMAX [Suspect]
     Route: 048
     Dates: start: 20070101, end: 20090101
  5. CALCIUM CARBONATE [Concomitant]
     Indication: OSTEOPOROSIS
     Route: 065
     Dates: start: 19960101
  6. FOSAMAX [Suspect]
     Indication: OSTEOPOROSIS
     Route: 048
     Dates: start: 19950101, end: 20041208
  7. VITAMINS (UNSPECIFIED) [Concomitant]
     Route: 048
  8. CORTICOSTEROIDS (UNSPECIFIED) [Concomitant]
     Route: 048

REACTIONS (37)
  - ROTATOR CUFF SYNDROME [None]
  - BREAST MASS [None]
  - OSTEOMYELITIS [None]
  - BONE METABOLISM DISORDER [None]
  - BURSITIS [None]
  - STRESS URINARY INCONTINENCE [None]
  - PELVIC PAIN [None]
  - LOW TURNOVER OSTEOPATHY [None]
  - OEDEMA PERIPHERAL [None]
  - BLOOD CHOLESTEROL INCREASED [None]
  - OSTEOMALACIA [None]
  - ATRIAL FIBRILLATION [None]
  - ARTHRALGIA [None]
  - LIVER DISORDER [None]
  - HYPERLIPIDAEMIA [None]
  - CARPAL TUNNEL SYNDROME [None]
  - LIMB OPERATION [None]
  - TRIGGER FINGER [None]
  - OSTEOARTHRITIS [None]
  - GASTROOESOPHAGEAL REFLUX DISEASE [None]
  - LIPOMA [None]
  - GRAFT COMPLICATION [None]
  - FALL [None]
  - DEVICE FAILURE [None]
  - FRACTURE NONUNION [None]
  - HYPERCHOLESTEROLAEMIA [None]
  - HYPOTHYROIDISM [None]
  - VISUAL ACUITY REDUCED [None]
  - STRESS FRACTURE [None]
  - PAIN IN EXTREMITY [None]
  - HYPERTHYROIDISM [None]
  - FEMUR FRACTURE [None]
  - BONE DISORDER [None]
  - FRACTURE DELAYED UNION [None]
  - OSTEONECROSIS [None]
  - IMPLANT SITE REACTION [None]
  - RHEUMATOID ARTHRITIS [None]
